FAERS Safety Report 12749764 (Version 2)
Quarter: 2017Q3

REPORT INFORMATION
  Report Type: Spontaneous
  Country: US (occurrence: US)
  Receive Date: 20160916
  Receipt Date: 20170720
  Transmission Date: 20171127
  Serious: No
  Sender: FDA-Public Use
  Company Number: US-PFIZER INC-2016431923

PATIENT
  Age: 58 Year
  Sex: Female

DRUGS (1)
  1. XELJANZ XR [Suspect]
     Active Substance: TOFACITINIB CITRATE
     Indication: RHEUMATOID ARTHRITIS
     Dosage: 11 MG, DAILY
     Route: 048
     Dates: start: 20160623

REACTIONS (6)
  - Calcinosis [Unknown]
  - Diarrhoea [Unknown]
  - Arthralgia [Unknown]
  - Finger deformity [Unknown]
  - Joint stiffness [Unknown]
  - Abdominal discomfort [Unknown]
